FAERS Safety Report 6633818-5 (Version None)
Quarter: 2010Q1

REPORT INFORMATION
  Report Type: 
  Country: None (occurrence: None)
  Receive Date: 20100315
  Receipt Date: 20100208
  Transmission Date: 20100710
  Serious: Yes (Other)
  Sender: FDA-Public Use
  Company Number: CN-JNJFOC-20100109245

PATIENT
  Age: 42 Year
  Sex: Female

DRUGS (2)
  1. GYNO-DAKTARIN [Suspect]
     Indication: VULVOVAGINAL MYCOTIC INFECTION
     Route: 067
  2. GYNO-DAKTARIN [Suspect]
     Route: 067

REACTIONS (6)
  - ABDOMINAL PAIN UPPER [None]
  - DISCOMFORT [None]
  - FATIGUE [None]
  - PRODUCT COUNTERFEIT [None]
  - VAGINAL HAEMORRHAGE [None]
  - VULVOVAGINAL PAIN [None]
